FAERS Safety Report 4949754-6 (Version None)
Quarter: 2006Q1

REPORT INFORMATION
  Report Type: 
  Country: None (occurrence: None)
  Receive Date: 20060321
  Receipt Date: 20060208
  Transmission Date: 20060701
  Serious: Yes (Hospitalization)
  Sender: FDA-Public Use
  Company Number: US-MERCK-0602USA02255

PATIENT
  Age: 60 Year
  Sex: Female
  Weight: 100 kg

DRUGS (8)
  1. VIOXX [Suspect]
     Indication: ARTHRITIS
     Route: 048
     Dates: start: 20030601, end: 20040901
  2. ISOSORBIDE DINITRATE [Concomitant]
     Route: 065
  3. NORTRIPTYLINE HYDROCHLORIDE [Concomitant]
     Route: 065
  4. FOSINOPRIL SODIUM [Concomitant]
     Route: 065
  5. FUROSEMIDE [Concomitant]
     Route: 065
  6. TRAZODONE HYDROCHLORIDE [Concomitant]
     Route: 065
  7. METOPROLOL [Concomitant]
     Route: 065
  8. LOVASTATIN [Concomitant]
     Route: 065

REACTIONS (3)
  - DEPRESSION [None]
  - HIP ARTHROPLASTY [None]
  - MYOCARDIAL INFARCTION [None]
